FAERS Safety Report 5215279-6 (Version None)
Quarter: 2006Q4

REPORT INFORMATION
  Report Type: 
  Country: None (occurrence: None)
  Receive Date: 20061122
  Receipt Date: 20051003
  Transmission Date: 20070319
  Serious: Yes (Other)
  Sender: FDA-Public Use
  Company Number: HQWYE848905OCT05

PATIENT
  Age: 51 Year
  Sex: Female
  Weight: 54.48 kg

DRUGS (1)
  1. PREMARIN [Suspect]
     Indication: HORMONE REPLACEMENT THERAPY
     Dosage: 1.5 G 1X PER 1 DAY, VAGINAL
     Route: 067
     Dates: start: 20050926, end: 20050926

REACTIONS (1)
  - VAGINAL SWELLING [None]
